FAERS Safety Report 9054551 (Version 3)
Quarter: 2013Q1

REPORT INFORMATION
  Report Type: Spontaneous
  Country: IT (occurrence: IT)
  Receive Date: 20130208
  Receipt Date: 20130318
  Transmission Date: 20140127
  Serious: Yes (Hospitalization)
  Sender: FDA-Public Use
  Company Number: IT-SANOFI-AVENTIS-2013SA008561

PATIENT
  Age: 72 Year
  Sex: Female

DRUGS (2)
  1. LANTUS [Suspect]
     Indication: DIABETES MELLITUS
     Route: 058
     Dates: start: 20000101, end: 20121202
  2. HUMALOG [Suspect]
     Indication: DIABETES MELLITUS
     Route: 058
     Dates: start: 20000101, end: 20121202

REACTIONS (3)
  - Syncope [Recovered/Resolved]
  - Incontinence [Recovered/Resolved]
  - Hypoglycaemia [Recovered/Resolved]
